FAERS Safety Report 8846536 (Version 3)
Quarter: 2012Q4

REPORT INFORMATION
  Report Type: 
  Country: US (occurrence: US)
  Receive Date: 20121017
  Receipt Date: 20121219
  Transmission Date: 20130627
  Serious: Yes (Other)
  Sender: FDA-Public Use
  Company Number: US-GLAXOSMITHKLINE-A0996687A

PATIENT
  Age: 62 Year
  Sex: Female

DRUGS (10)
  1. REQUIP XL [Suspect]
     Indication: DYSTONIA
     Dosage: 6MG Twice per day
     Route: 048
  2. ROPINIROLE HYDROCHLORIDE [Suspect]
     Indication: PRODUCT USED FOR UNKNOWN INDICATION
  3. GLUCOVANCE [Concomitant]
  4. TRICOR [Concomitant]
  5. LEVOTHYROXINE [Concomitant]
  6. METANX [Concomitant]
  7. ACIPHEX [Concomitant]
  8. LISINOPRIL [Concomitant]
  9. VITAMIN D [Concomitant]
  10. UNKNOWN [Concomitant]

REACTIONS (8)
  - Intestinal obstruction [Unknown]
  - Medication residue [Not Recovered/Not Resolved]
  - Haemorrhoids [Unknown]
  - Diarrhoea [Unknown]
  - Haemorrhoid operation [Unknown]
  - Product quality issue [Not Recovered/Not Resolved]
  - Gastrointestinal pain [Unknown]
  - Flank pain [Unknown]
